FAERS Safety Report 26187185 (Version 1)
Quarter: 2025Q4

REPORT INFORMATION
  Report Type: Spontaneous
  Country: JP (occurrence: JP)
  Receive Date: 20251222
  Receipt Date: 20251222
  Transmission Date: 20260117
  Serious: Yes (Hospitalization, Other)
  Sender: NOVO NORDISK
  Company Number: JP-NOVOPROD-1547079

PATIENT
  Age: 8 Decade
  Sex: Male

DRUGS (11)
  1. RYBELSUS [Suspect]
     Active Substance: SEMAGLUTIDE
     Indication: Type 2 diabetes mellitus
     Dosage: 7 MG, QD
     Route: 048
  2. RYZODEG 70/30 [Concomitant]
     Active Substance: INSULIN ASPART\INSULIN DEGLUDEC
     Indication: Type 2 diabetes mellitus
     Dosage: UNK
     Route: 058
     Dates: end: 20251005
  3. CYCLOSPORINE [Concomitant]
     Active Substance: CYCLOSPORINE
     Indication: Aplasia pure red cell
     Dosage: 350 MG, QD
     Route: 048
     Dates: start: 201708
  4. HALOPERIDOL [Concomitant]
     Active Substance: HALOPERIDOL
     Indication: Chorea
     Dosage: 3 MG, QD
     Dates: start: 202307, end: 20251005
  5. FEBUXOSTAT [Concomitant]
     Active Substance: FEBUXOSTAT
     Indication: Hyperuricaemia
     Dosage: 20 MG, QD
     Route: 048
  6. DAPAGLIFLOZIN [Concomitant]
     Active Substance: DAPAGLIFLOZIN
     Indication: Type 2 diabetes mellitus
     Dosage: 5 MG, QD
     Route: 048
     Dates: end: 20251005
  7. AMITIZA [Concomitant]
     Active Substance: LUBIPROSTONE
     Indication: Product used for unknown indication
     Dosage: 12 UG/DAY
     Route: 048
     Dates: start: 20251005
  8. POLYSTYRENE SULFONATE NA [Concomitant]
     Indication: Product used for unknown indication
     Dosage: 4 G, QD
     Route: 048
     Dates: end: 20251005
  9. NICARDIPINE HYDROCHLORIDE [Concomitant]
     Active Substance: NICARDIPINE HYDROCHLORIDE
     Indication: Blood pressure abnormal
     Dosage: UNK
  10. AMLODIPINE [Concomitant]
     Active Substance: AMLODIPINE BESYLATE
     Indication: Blood pressure abnormal
     Dosage: UNK
  11. ENTRESTO [Concomitant]
     Active Substance: SACUBITRIL\VALSARTAN
     Indication: Blood pressure abnormal
     Dosage: UNK

REACTIONS (4)
  - Thalamus haemorrhage [Unknown]
  - Cerebral haematoma [Recovering/Resolving]
  - Hemiplegia [Unknown]
  - Dyslalia [Unknown]

NARRATIVE: CASE EVENT DATE: 20251004
